FAERS Safety Report 7907714-7 (Version None)
Quarter: 2011Q4

REPORT INFORMATION
  Report Type: 
  Country: None (occurrence: None)
  Receive Date: 20111110
  Receipt Date: 20111028
  Transmission Date: 20120403
  Serious: Yes (Hospitalization)
  Sender: FDA-Public Use
  Company Number: US-ELI_LILLY_AND_COMPANY-US201111000079

PATIENT
  Sex: Female

DRUGS (4)
  1. OMEPRAZOLE [Concomitant]
  2. ZYPREXA [Suspect]
     Indication: BIPOLAR DISORDER
     Dosage: 15 MG, UNK
     Dates: start: 20080101
  3. LOTREL [Concomitant]
  4. DIURETICS [Concomitant]

REACTIONS (2)
  - BLOOD POTASSIUM DECREASED [None]
  - NEURITIS [None]
